FAERS Safety Report 9355477 (Version 6)
Quarter: 2013Q4

REPORT INFORMATION
  Report Type: Report from Study
  Country: CN (occurrence: CN)
  Receive Date: 20130619
  Receipt Date: 20131115
  Transmission Date: 20140711
  Serious: Yes (Life-Threatening)
  Sender: FDA-Public Use
  Company Number: CN-SANOFI-AVENTIS-2013SA061075

PATIENT
  Age: 50 Year
  Sex: Female
  Weight: 49 kg

DRUGS (16)
  1. AFLIBERCEPT [Suspect]
     Indication: COLORECTAL CANCER METASTATIC
     Route: 042
     Dates: start: 20120925, end: 20120925
  2. AFLIBERCEPT [Suspect]
     Indication: COLORECTAL CANCER METASTATIC
     Route: 042
     Dates: start: 20130610, end: 20130610
  3. IRINOTECAN [Suspect]
     Indication: COLORECTAL CANCER METASTATIC
     Route: 042
     Dates: start: 20120925, end: 20120925
  4. IRINOTECAN [Suspect]
     Indication: COLORECTAL CANCER METASTATIC
     Route: 042
     Dates: start: 20130610, end: 20130610
  5. 5-FU [Suspect]
     Indication: COLORECTAL CANCER METASTATIC
     Route: 040
     Dates: start: 20120925, end: 20120925
  6. 5-FU [Suspect]
     Indication: COLORECTAL CANCER METASTATIC
     Route: 040
     Dates: start: 20130610, end: 20130610
  7. 5-FU [Suspect]
     Indication: COLORECTAL CANCER METASTATIC
     Route: 041
     Dates: start: 20130610, end: 20130612
  8. 5-FU [Suspect]
     Indication: COLORECTAL CANCER METASTATIC
     Route: 041
     Dates: start: 20120925, end: 20120927
  9. LEUCOVORIN [Suspect]
     Indication: COLORECTAL CANCER METASTATIC
     Route: 042
     Dates: start: 20120925, end: 20120925
  10. LEUCOVORIN [Suspect]
     Indication: COLORECTAL CANCER METASTATIC
     Route: 042
     Dates: start: 20130610, end: 20130610
  11. FLUOXETINE [Concomitant]
     Dates: start: 20130201
  12. DICLOFENAC [Concomitant]
     Dates: start: 20130423
  13. INDOMETACIN [Concomitant]
     Dates: start: 20130607, end: 20130607
  14. GRANISETRON [Concomitant]
     Dates: start: 20130610, end: 20130610
  15. DEXAMETHASONE [Concomitant]
     Dates: start: 20130610, end: 20130610
  16. PROMETHAZINE [Concomitant]
     Dates: start: 20130610, end: 20130610

REACTIONS (4)
  - Interstitial lung disease [Recovering/Resolving]
  - Liver injury [Recovered/Resolved]
  - Proteinuria [Recovered/Resolved]
  - Thrombocytopenia [Recovered/Resolved]
